FAERS Safety Report 8852630 (Version 2)
Quarter: 2012Q4

REPORT INFORMATION
  Report Type: 
  Country: US (occurrence: US)
  Receive Date: 20121022
  Receipt Date: 20121114
  Transmission Date: 20130627
  Serious: Yes (Hospitalization, Other)
  Sender: FDA-Public Use
  Company Number: US-VERTEX PHARMACEUTICAL INC.-2012-023316

PATIENT
  Age: 60 Year
  Sex: Female
  Weight: 114.29 kg

DRUGS (13)
  1. INCIVEK [Suspect]
     Indication: HEPATITIS C
     Dosage: 2 tabs, tid
     Route: 048
     Dates: start: 20120627, end: 20120923
  2. PEGASYS [Suspect]
     Indication: HEPATITIS C
     Dosage: 180 ?g, qw
     Route: 058
     Dates: start: 20120627, end: 20120923
  3. RIBAVIRIN [Suspect]
     Indication: HEPATITIS C
     Dosage: 1200 g, bid
     Route: 048
     Dates: start: 20120627, end: 20120923
  4. JANUVIA [Concomitant]
  5. LASIX                              /00032601/ [Concomitant]
  6. TEGRETOL [Concomitant]
  7. PREDNISONE [Concomitant]
  8. CELLCEPT                           /01275102/ [Concomitant]
  9. LEXAPRO [Concomitant]
  10. RISPERDAL [Concomitant]
  11. HYDROXYCHLOROQUINE [Concomitant]
  12. ACTOS [Concomitant]
  13. METOPROLOL [Concomitant]

REACTIONS (3)
  - Deep vein thrombosis [Recovered/Resolved]
  - Pneumonia [None]
  - Pulmonary embolism [Unknown]
